FAERS Safety Report 8010615-X (Version None)
Quarter: 2011Q4

REPORT INFORMATION
  Report Type: 
  Country: None (occurrence: None)
  Receive Date: 20111228
  Receipt Date: 20111223
  Transmission Date: 20120403
  Serious: Yes (Death, Life-Threatening, Hospitalization)
  Sender: FDA-Public Use
  Company Number: PHHO2011DE09809

PATIENT
  Sex: Male
  Weight: 89.9 kg

DRUGS (11)
  1. MOVIPREP [Concomitant]
     Indication: CONSTIPATION
  2. METOPROLOL SUCCINATE [Concomitant]
     Indication: HYPERTENSION
  3. LAXANS [Concomitant]
     Indication: CONSTIPATION
  4. DOXAZOSIN MESYLATE [Concomitant]
     Indication: HYPERTENSION
  5. ENALAPRIL MALEATE [Suspect]
     Indication: CARDIAC FAILURE CHRONIC
     Dosage: DOUBLE BLINDED
     Route: 048
     Dates: start: 20101104, end: 20100606
  6. TORSEMIDE [Concomitant]
     Indication: HYPERTENSION
  7. METFORMIN HCL [Suspect]
     Indication: DIABETES MELLITUS
  8. MAGNESIUM [Concomitant]
     Indication: MUSCLE SPASMS
  9. BLINDED NO TREATMENT RECEIVED [Suspect]
     Indication: CARDIAC FAILURE CHRONIC
     Dosage: DOUBLE BLINDED
     Route: 048
     Dates: start: 20101104, end: 20100606
  10. VALSARTAN [Suspect]
     Indication: CARDIAC FAILURE CHRONIC
     Dosage: DOUBLE BLINDED
     Route: 048
     Dates: start: 20101104, end: 20100606
  11. ASPIRIN [Concomitant]
     Indication: ARRHYTHMIA

REACTIONS (2)
  - PANCREATIC CARCINOMA [None]
  - JAUNDICE [None]
